FAERS Safety Report 18233965 (Version 1)
Quarter: 2020Q3

REPORT INFORMATION
  Report Type: Spontaneous
  Country: FR (occurrence: FR)
  Receive Date: 20200904
  Receipt Date: 20200904
  Transmission Date: 20201103
  Serious: Yes (Other)
  Sender: FDA-Public Use
  Company Number: NVSC2020FR237738

PATIENT
  Age: 79 Year
  Sex: Male

DRUGS (1)
  1. PREDNISOLON SANDOZ [Suspect]
     Active Substance: PREDNISOLONE
     Indication: PRODUCT USED FOR UNKNOWN INDICATION
     Dosage: 4 DF (IN THE MORNING/DURING 5 DAYS) STARTED AROUND 07 AUG 2020
     Route: 065
     Dates: end: 20200811

REACTIONS (13)
  - Adrenal insufficiency [Unknown]
  - Drug hypersensitivity [Unknown]
  - Impaired healing [Unknown]
  - Vision blurred [Unknown]
  - Taste disorder [Unknown]
  - Insomnia [Unknown]
  - Asthenia [Unknown]
  - Oral discomfort [Not Recovered/Not Resolved]
  - Sleep disorder [Unknown]
  - Muscular weakness [Unknown]
  - Erythema [Unknown]
  - Swelling face [Unknown]
  - Oral pustule [Recovering/Resolving]
